FAERS Safety Report 4866462-0 (Version None)
Quarter: 2005Q4

REPORT INFORMATION
  Report Type: 
  Country: None (occurrence: None)
  Receive Date: 20051227
  Receipt Date: 20051215
  Transmission Date: 20060501
  Serious: Yes (Other)
  Sender: FDA-Public Use
  Company Number: US-MERCK-0512USA02520

PATIENT
  Sex: Female

DRUGS (4)
  1. VIOXX [Suspect]
     Indication: INFLAMMATION
     Route: 048
     Dates: start: 19990101, end: 20031101
  2. VIOXX [Suspect]
     Indication: PAIN
     Route: 048
     Dates: start: 19990101, end: 20031101
  3. CELEBREX [Suspect]
     Indication: INFLAMMATION
     Route: 065
     Dates: start: 19990101, end: 20031101
  4. CELEBREX [Suspect]
     Indication: PAIN
     Route: 065
     Dates: start: 19990101, end: 20031101

REACTIONS (1)
  - MYOCARDIAL INFARCTION [None]
